FAERS Safety Report 25817491 (Version 1)
Quarter: 2025Q3

REPORT INFORMATION
  Report Type: Spontaneous
  Country: SA (occurrence: SA)
  Receive Date: 20250918
  Receipt Date: 20250918
  Transmission Date: 20251020
  Serious: Yes (Life-Threatening, Hospitalization, Other)
  Sender: AMGEN
  Company Number: SA-AMGEN-SAUSP2025182102

PATIENT
  Age: 38 Year
  Sex: Male

DRUGS (13)
  1. FILGRASTIM [Suspect]
     Active Substance: FILGRASTIM
     Indication: Haematopoietic stem cell mobilisation
     Route: 065
     Dates: start: 2020
  2. CARMUSTINE [Concomitant]
     Active Substance: CARMUSTINE
     Indication: Haematopoietic stem cell mobilisation
     Route: 065
     Dates: start: 202001
  3. ETOPOSIDE [Concomitant]
     Active Substance: ETOPOSIDE
     Indication: Haematopoietic stem cell mobilisation
     Route: 065
     Dates: start: 202001
  4. CYTARABINE [Concomitant]
     Active Substance: CYTARABINE
     Indication: Haematopoietic stem cell mobilisation
     Route: 065
     Dates: start: 202001
  5. MELPHALAN [Concomitant]
     Active Substance: MELPHALAN
     Indication: Haematopoietic stem cell mobilisation
     Route: 065
     Dates: start: 202001
  6. IMIPENEM [Concomitant]
     Active Substance: IMIPENEM
     Indication: Prophylaxis
     Dates: start: 202001
  7. VANCOMYCIN [Concomitant]
     Active Substance: VANCOMYCIN
     Indication: Prophylaxis
     Dates: start: 202001
  8. CASPOFUNGIN [Concomitant]
     Active Substance: CASPOFUNGIN
     Indication: Prophylaxis
     Route: 065
     Dates: start: 202001
  9. MOXIFLOXACIN [Concomitant]
     Active Substance: MOXIFLOXACIN
     Indication: Prophylaxis
     Route: 065
     Dates: start: 202001
  10. METRONIDAZOLE [Concomitant]
     Active Substance: METRONIDAZOLE
     Indication: Prophylaxis
     Dates: start: 202001
  11. GANCICLOVIR [Concomitant]
     Active Substance: GANCICLOVIR
     Indication: Prophylaxis
     Route: 065
     Dates: start: 202001
  12. BRENTUXIMAB VEDOTIN [Concomitant]
     Active Substance: BRENTUXIMAB VEDOTIN
     Indication: Hodgkin^s disease nodular sclerosis
     Route: 065
     Dates: start: 20200112
  13. BENDAMUSTINE [Concomitant]
     Active Substance: BENDAMUSTINE
     Indication: Hodgkin^s disease nodular sclerosis
     Route: 065
     Dates: start: 20200112

REACTIONS (5)
  - Engraftment syndrome [Recovering/Resolving]
  - Human rhinovirus test positive [Unknown]
  - Febrile neutropenia [Unknown]
  - Sinusitis [Unknown]
  - Cough [Unknown]

NARRATIVE: CASE EVENT DATE: 20200217
